FAERS Safety Report 9781834 (Version 2)
Quarter: 2013Q4

REPORT INFORMATION
  Report Type: Spontaneous
  Country: FR (occurrence: FR)
  Receive Date: 20131225
  Receipt Date: 20131225
  Transmission Date: 20140711
  Serious: Yes (Hospitalization, Other)
  Sender: FDA-Public Use
  Company Number: FR-AMGEN-FRASP2013036162

PATIENT
  Age: 61 Year
  Sex: Male
  Weight: 69 kg

DRUGS (6)
  1. ENBREL [Suspect]
     Indication: RHEUMATOID ARTHRITIS
     Dosage: UNK
     Route: 058
     Dates: start: 200807, end: 201305
  2. METHOTREXATE [Concomitant]
     Indication: RHEUMATOID ARTHRITIS
     Dosage: 12.5 MG, WEEKLY
     Route: 058
     Dates: start: 2006
  3. SPECIAFOLDINE [Concomitant]
     Indication: RHEUMATOID ARTHRITIS
     Dosage: 2 DF, WEEKLY
     Route: 048
     Dates: start: 2006
  4. CORTANCYL [Concomitant]
     Dosage: 3 MG, DAILY
     Dates: start: 2006
  5. VOLTARENE                          /00372302/ [Concomitant]
     Dosage: 75 MG, 1 TAB TWICE DAILY
     Dates: start: 2006, end: 201307
  6. METFORMIN [Concomitant]
     Indication: DIABETES MELLITUS
     Dosage: 2 DF, DAILY
     Dates: start: 2006

REACTIONS (8)
  - Bence Jones proteinuria [Unknown]
  - Monoclonal gammopathy [Unknown]
  - Arthropathy [Unknown]
  - Confusional state [Unknown]
  - Condition aggravated [Unknown]
  - Sleep disorder [Unknown]
  - Arthralgia [Unknown]
  - Lymphadenopathy [Unknown]
